FAERS Safety Report 9183075 (Version 1)
Quarter: 2013Q1

REPORT INFORMATION
  Report Type: Spontaneous
  Country: US (occurrence: US)
  Receive Date: 20130322
  Receipt Date: 20130322
  Transmission Date: 20140127
  Serious: Yes (Other)
  Sender: FDA-Public Use
  Company Number: US-BRISTOL-MYERS SQUIBB COMPANY-16875312

PATIENT
  Age: 66 Year
  Sex: Male

DRUGS (2)
  1. ERBITUX [Suspect]
     Indication: HEAD AND NECK CANCER
     Dosage: 1DF 4-5 CC
     Route: 042
     Dates: start: 20120806, end: 20120806
  2. CISPLATIN [Concomitant]
     Indication: HEAD AND NECK CANCER

REACTIONS (1)
  - Hypersensitivity [Recovered/Resolved]
